FAERS Safety Report 17568534 (Version 1)
Quarter: 2020Q1

REPORT INFORMATION
  Report Type: Spontaneous
  Country: DE (occurrence: DE)
  Receive Date: 20200320
  Receipt Date: 20200320
  Transmission Date: 20200409
  Serious: Yes (Other)
  Sender: FDA-Public Use
  Company Number: DE-BIOMARINAP-DE-2020-129238

PATIENT
  Sex: Male

DRUGS (2)
  1. GLAUPAX [Suspect]
     Active Substance: ACETAZOLAMIDE
     Indication: INTRAOCULAR PRESSURE TEST ABNORMAL
     Route: 065
  2. NAGLAZYME [Suspect]
     Active Substance: GALSULFASE
     Indication: PRODUCT USED FOR UNKNOWN INDICATION
     Route: 042

REACTIONS (6)
  - Hypotension [Recovered/Resolved]
  - Dyspnoea [Unknown]
  - Bradycardia [Recovered/Resolved]
  - Peripheral vascular disorder [Unknown]
  - Nausea [Unknown]
  - Fatigue [Unknown]
